FAERS Safety Report 12465577 (Version 3)
Quarter: 2016Q3

REPORT INFORMATION
  Report Type: Spontaneous
  Country: US (occurrence: US)
  Receive Date: 20160614
  Receipt Date: 20160901
  Transmission Date: 20161109
  Serious: Yes (Other)
  Sender: FDA-Public Use
  Company Number: US-RELYPSA-RLY2016000885

PATIENT
  Age: 79 Year
  Sex: Male

DRUGS (12)
  1. ALLOPURINOL. [Concomitant]
     Active Substance: ALLOPURINOL
  2. LINZESS [Concomitant]
     Active Substance: LINACLOTIDE
  3. LASIX [Concomitant]
     Active Substance: FUROSEMIDE
  4. RANITIDINE. [Concomitant]
     Active Substance: RANITIDINE
  5. LABETALOL [Concomitant]
     Active Substance: LABETALOL\LABETALOL HYDROCHLORIDE
  6. BABY ASPIRIN [Concomitant]
     Active Substance: ASPIRIN
  7. PLAVIX [Concomitant]
     Active Substance: CLOPIDOGREL BISULFATE
  8. CLONIDINE. [Concomitant]
     Active Substance: CLONIDINE
  9. NITROGLYCERIN. [Concomitant]
     Active Substance: NITROGLYCERIN
  10. VELTASSA [Suspect]
     Active Substance: PATIROMER
     Indication: HYPERKALAEMIA
     Dosage: 8.4 G, QD
     Route: 065
     Dates: start: 20160520, end: 20160529
  11. LOVASTATIN. [Concomitant]
     Active Substance: LOVASTATIN
  12. ROCALTROL [Concomitant]
     Active Substance: CALCITRIOL

REACTIONS (10)
  - Tremor [Recovered/Resolved]
  - Asthenia [Recovered/Resolved]
  - Headache [Recovered/Resolved]
  - Deafness unilateral [Recovered/Resolved]
  - Dysphonia [Recovered/Resolved]
  - Mood altered [Recovered/Resolved]
  - Abdominal pain [Recovered/Resolved]
  - Flatulence [Recovering/Resolving]
  - Abdominal discomfort [Recovered/Resolved]
  - Decreased appetite [Recovered/Resolved]

NARRATIVE: CASE EVENT DATE: 20160527
